FAERS Safety Report 5355468-3 (Version None)
Quarter: 2007Q2

REPORT INFORMATION
  Report Type: 
  Country: None (occurrence: None)
  Receive Date: 20070613
  Receipt Date: 20070611
  Transmission Date: 20071010
  Serious: Yes (Other)
  Sender: FDA-Public Use
  Company Number: BE-BAYER-200710644GDS

PATIENT
  Sex: Female

DRUGS (1)
  1. ADALAT [Suspect]
     Indication: HYPERTENSION
     Route: 048
     Dates: start: 20060801, end: 20061101

REACTIONS (1)
  - NO ADVERSE DRUG EFFECT [None]
